FAERS Safety Report 17658436 (Version 1)
Quarter: 2020Q2

REPORT INFORMATION
  Report Type: Spontaneous
  Country: CA (occurrence: CA)
  Receive Date: 20200412
  Receipt Date: 20200412
  Transmission Date: 20200713
  Serious: Yes (Other)
  Sender: FDA-Public Use
  Company Number: CA-ABBVIE-19K-028-2645380-00

PATIENT
  Sex: Female

DRUGS (4)
  1. CELEBREX [Suspect]
     Active Substance: CELECOXIB
     Indication: PRODUCT USED FOR UNKNOWN INDICATION
     Route: 065
  2. HUMIRA [Suspect]
     Active Substance: ADALIMUMAB
     Indication: PRODUCT USED FOR UNKNOWN INDICATION
     Route: 058
  3. CELEBREX [Suspect]
     Active Substance: CELECOXIB
     Route: 065
     Dates: end: 201809
  4. XELJANZ [Suspect]
     Active Substance: TOFACITINIB CITRATE
     Indication: PRODUCT USED FOR UNKNOWN INDICATION
     Route: 065

REACTIONS (7)
  - Lethargy [Unknown]
  - Paraesthesia oral [Unknown]
  - Urinary tract infection [Unknown]
  - Blister [Unknown]
  - Myocardial infarction [Unknown]
  - Paraesthesia [Unknown]
  - Chills [Unknown]
